FAERS Safety Report 7287000-1 (Version None)
Quarter: 2011Q1

REPORT INFORMATION
  Report Type: 
  Country: None (occurrence: None)
  Receive Date: 20110211
  Receipt Date: 20110202
  Transmission Date: 20110831
  Serious: No
  Sender: FDA-Public Use
  Company Number: US-BIOGENIDEC-2011BI004175

PATIENT
  Sex: Female

DRUGS (5)
  1. TEGRETOL [Concomitant]
     Indication: PAIN IN EXTREMITY
  2. TYSABRI [Suspect]
     Indication: MULTIPLE SCLEROSIS
     Route: 042
     Dates: start: 20110112
  3. TEGRETOL [Concomitant]
     Indication: BURNING SENSATION
  4. NEURONTIN [Concomitant]
     Indication: BURNING SENSATION
  5. NEURONTIN [Concomitant]
     Indication: PAIN IN EXTREMITY

REACTIONS (7)
  - BACK PAIN [None]
  - BURNING SENSATION [None]
  - PAIN [None]
  - NAUSEA [None]
  - HAEMOGLOBIN DECREASED [None]
  - PAIN IN EXTREMITY [None]
  - VOMITING [None]
